FAERS Safety Report 5589509-5 (Version None)
Quarter: 2008Q1

REPORT INFORMATION
  Report Type: 
  Country: None (occurrence: None)
  Receive Date: 20080114
  Receipt Date: 20080102
  Transmission Date: 20080703
  Serious: Yes (Congenital Anomaly, Other)
  Sender: FDA-Public Use
  Company Number: US-AMGEN-US250319

PATIENT
  Weight: 3.033 kg

DRUGS (4)
  1. ENBREL [Suspect]
     Indication: RHEUMATOID ARTHRITIS
     Route: 064
     Dates: start: 20050708, end: 20060329
  2. PRENATAL VITAMINS [Concomitant]
     Route: 064
     Dates: start: 20050809, end: 20060329
  3. VITAMIN CAP [Concomitant]
     Route: 064
     Dates: start: 20050820, end: 20051009
  4. ANTIBIOTICS NOS [Concomitant]
     Route: 065
     Dates: start: 20060329, end: 20060329

REACTIONS (1)
  - MICROCEPHALY [None]
